FAERS Safety Report 6000571-8 (Version None)
Quarter: 2008Q4

REPORT INFORMATION
  Report Type: 
  Country: None (occurrence: None)
  Receive Date: 20081215
  Receipt Date: 20081208
  Transmission Date: 20090506
  Serious: Yes (Other)
  Sender: FDA-Public Use
  Company Number: DE-AVENTIS-200813191DE

PATIENT
  Age: 35 Year
  Sex: Female

DRUGS (1)
  1. ARAVA [Suspect]
     Dosage: DOSE: NOT REPORTED
     Route: 048

REACTIONS (8)
  - DRUG EXPOSURE BEFORE PREGNANCY [None]
  - FOETAL DISTRESS SYNDROME [None]
  - FOETAL GROWTH RETARDATION [None]
  - OLIGOHYDRAMNIOS [None]
  - PLACENTAL INSUFFICIENCY [None]
  - PRE-ECLAMPSIA [None]
  - PREMATURE BABY [None]
  - TWIN PREGNANCY [None]
